FAERS Safety Report 5469140-2 (Version None)
Quarter: 2007Q3

REPORT INFORMATION
  Report Type: 
  Country: None (occurrence: None)
  Receive Date: 20070927
  Receipt Date: 20070919
  Transmission Date: 20080115
  Serious: Yes (Hospitalization, Other)
  Sender: FDA-Public Use
  Company Number: PHBS2007BR15725

PATIENT
  Age: 79 Year
  Sex: Female

DRUGS (8)
  1. TEGRETOL [Suspect]
     Dosage: 1 DF, QD
     Route: 048
     Dates: start: 20070101, end: 20070301
  2. TEGRETOL [Suspect]
     Dosage: 1 DF, Q48H
     Dates: start: 20070301, end: 20070329
  3. TEGRETOL [Suspect]
     Dosage: 1 DF, QD
     Route: 048
     Dates: start: 20070709, end: 20070714
  4. TEGRETOL [Suspect]
     Dosage: 2 DF, QD
     Route: 048
     Dates: start: 20070714, end: 20070726
  5. TEGRETOL [Suspect]
     Dosage: 2.5 DF, QD
     Route: 048
     Dates: start: 20070726, end: 20070919
  6. ARCOXIA [Concomitant]
     Indication: RIB FRACTURE
     Dates: start: 20070801
  7. ZYRTEC [Concomitant]
  8. TRILEPTAL [Concomitant]

REACTIONS (4)
  - CONVULSION [None]
  - ERYTHEMA [None]
  - HYPERSENSITIVITY [None]
  - OEDEMA PERIPHERAL [None]
